FAERS Safety Report 5229237-9 (Version None)
Quarter: 2007Q1

REPORT INFORMATION
  Report Type: 
  Country: None (occurrence: None)
  Receive Date: 20061201
  Receipt Date: 20061030
  Transmission Date: 20070707
  Serious: No
  Sender: FDA-Public Use
  Company Number: US200608001186

PATIENT
  Age: 48 Year
  Sex: Female
  Weight: 59 kg

DRUGS (4)
  1. CYMBALTA [Suspect]
     Indication: LIMB INJURY
     Dosage: 30 MG, DAILY (1/D)
  2. CYMBALTA [Suspect]
     Dosage: 20 MG, OTHER
  3. MOTRIN [Concomitant]
  4. CLARITIN/USA/(LORATADINE) [Concomitant]

REACTIONS (5)
  - AMNESIA [None]
  - GINGIVAL DISORDER [None]
  - HEART RATE INCREASED [None]
  - SLEEP DISORDER [None]
  - SWOLLEN TONGUE [None]
